FAERS Safety Report 5191964-X (Version None)
Quarter: 2006Q4

REPORT INFORMATION
  Report Type: 
  Country: None (occurrence: None)
  Receive Date: 20061227
  Receipt Date: 20061219
  Transmission Date: 20070319
  Serious: Yes (Other)
  Sender: FDA-Public Use
  Company Number: US-AVENTIS-200620209US

PATIENT

DRUGS (1)
  1. TAXOTERE [Suspect]
     Dosage: DOSE: UNK
     Route: 042

REACTIONS (2)
  - INFUSION SITE INDURATION [None]
  - INJECTION SITE NECROSIS [None]
